FAERS Safety Report 8776738 (Version 2)
Quarter: 2012Q4

REPORT INFORMATION
  Report Type: 
  Country: US (occurrence: US)
  Receive Date: 20120910
  Receipt Date: 20120911
  Transmission Date: 20130627
  Serious: Yes (Other)
  Sender: FDA-Public Use
  Company Number: US-UCBSA-064797

PATIENT
  Age: 49 Year
  Sex: Female
  Weight: 66.21 kg

DRUGS (23)
  1. VISTARIL [Suspect]
  2. LORTAB [Suspect]
     Indication: PAIN
     Dosage: UNKNOWN
  3. XANAX [Suspect]
     Indication: BIPOLAR DISORDER
  4. XANAX [Suspect]
     Indication: PANIC ATTACK
  5. XANAX [Suspect]
     Indication: ANXIETY
  6. XANAX [Suspect]
     Indication: DEPRESSION
  7. LYRICA [Suspect]
     Indication: NEURALGIA
     Dates: start: 2012
  8. LYRICA [Suspect]
     Indication: NEURALGIA
     Dosage: UNKNOWN
  9. SEROQUEL [Suspect]
     Dosage: 500 MG DAILY
  10. VICODIN [Suspect]
     Indication: PAIN
     Dosage: UNKNOWN
  11. NORCO [Suspect]
     Indication: CARPAL TUNNEL SYNDROME
     Dosage: UNKNOWN
  12. NORCO [Suspect]
     Indication: NECK PAIN
     Dosage: UNKNOWN
  13. NORCO [Suspect]
     Indication: BACK PAIN
     Dosage: UNKNOWN
  14. NORCO [Suspect]
     Indication: SPINAL PAIN
     Dosage: UNKNOWN
  15. CYMBALTA [Suspect]
     Indication: DEPRESSION
     Dosage: AT NIGHT
     Dates: start: 2012
  16. CYMBALTA [Suspect]
     Indication: PANIC ATTACK
     Dosage: AT NIGHT
     Dates: start: 2012
  17. CYMBALTA [Suspect]
     Indication: ANXIETY
     Dosage: AT NIGHT
     Dates: start: 2012
  18. CYMBALTA [Suspect]
     Indication: BIPOLAR DISORDER
     Dosage: AT NIGHT
     Dates: start: 2012
  19. CYMBALTA [Suspect]
     Indication: FIBROMYALGIA
     Dosage: AT NIGHT
     Dates: start: 2012
  20. AMBIEN [Concomitant]
     Dosage: UNKNOWN DOSE
  21. CLONIDINE [Concomitant]
     Dosage: 0.1 MG DAILY
  22. ZANAFLEX [Concomitant]
  23. RITALIN [Concomitant]

REACTIONS (14)
  - Bipolar disorder [Unknown]
  - Spinal disorder [Unknown]
  - Fibromyalgia [Unknown]
  - Fear [Unknown]
  - Mutism [Unknown]
  - Disturbance in attention [Unknown]
  - Hallucination, visual [Unknown]
  - Hypoaesthesia [Unknown]
  - Gait disturbance [Unknown]
  - Back pain [Unknown]
  - Feeling abnormal [Unknown]
  - Pain in extremity [Unknown]
  - Arthralgia [Unknown]
  - Drug ineffective [Unknown]
